FAERS Safety Report 10677300 (Version 1)
Quarter: 2014Q4

REPORT INFORMATION
  Report Type: Spontaneous
  Country: US (occurrence: US)
  Receive Date: 20141226
  Receipt Date: 20141226
  Transmission Date: 20150529
  Serious: No
  Sender: FDA-Public Use
  Company Number: US-009507513-1412USA007246

PATIENT
  Age: 31 Year
  Sex: Female

DRUGS (2)
  1. EMTRICITABINE (+) TENOFOVIR DISOPROXIL FUMARATE [Suspect]
     Active Substance: EMTRICITABINE\TENOFOVIR DISOPROXIL
     Dosage: 1 DF, QD
     Route: 048
  2. RALTEGRAVIR POTASSIUM [Suspect]
     Active Substance: RALTEGRAVIR POTASSIUM
     Dosage: 800 DF, QD
     Route: 048

REACTIONS (2)
  - Maternal exposure before pregnancy [Unknown]
  - No adverse event [Unknown]
